FAERS Safety Report 20097227 (Version 1)
Quarter: 2021Q4

REPORT INFORMATION
  Report Type: Spontaneous
  Country: US (occurrence: None)
  Receive Date: 20211122
  Receipt Date: 20211122
  Transmission Date: 20220303
  Serious: No
  Sender: FDA-Public Use
  Company Number: None

PATIENT
  Sex: Female

DRUGS (1)
  1. CAPECITABINE [Suspect]
     Active Substance: CAPECITABINE
     Indication: Pancreatic carcinoma
     Dosage: FREQUENCY : DAILY;  TAKE 1 TABLET (500MG) IN THE MORNING?AND TAKE 3 TABLETS (1500MG) IN THE EVENING
     Route: 048
     Dates: start: 20211005

REACTIONS (2)
  - Adverse drug reaction [None]
  - Therapy interrupted [None]
